FAERS Safety Report 23906241 (Version 1)
Quarter: 2024Q2

REPORT INFORMATION
  Report Type: Report from Study
  Country: US (occurrence: US)
  Receive Date: 20240528
  Receipt Date: 20240528
  Transmission Date: 20240716
  Serious: Yes (Other)
  Sender: FDA-Public Use
  Company Number: US-ABBVIE-5774010

PATIENT
  Sex: Female

DRUGS (1)
  1. HUMIRA [Suspect]
     Active Substance: ADALIMUMAB
     Indication: Product used for unknown indication
     Route: 058
     Dates: start: 20220101

REACTIONS (5)
  - Retinal oedema [Unknown]
  - Eye oedema [Unknown]
  - Off label use [Unknown]
  - Ocular discomfort [Unknown]
  - Uveitis [Unknown]
